FAERS Safety Report 5507945-X (Version None)
Quarter: 2007Q4

REPORT INFORMATION
  Report Type: 
  Country: None (occurrence: None)
  Receive Date: 20071106
  Receipt Date: 20071024
  Transmission Date: 20080405
  Serious: Yes (Other)
  Sender: FDA-Public Use
  Company Number: BR-PFIZER INC-2007080342

PATIENT
  Sex: Male
  Weight: 86 kg

DRUGS (2)
  1. CHAMPIX [Suspect]
     Indication: SMOKING CESSATION THERAPY
     Route: 048
     Dates: start: 20070629, end: 20070919
  2. CHAMPIX [Suspect]
     Dates: start: 20070627, end: 20070701

REACTIONS (3)
  - GENERALISED ERYTHEMA [None]
  - HYPERSENSITIVITY [None]
  - RASH [None]
